FAERS Safety Report 9649438 (Version 1)
Quarter: 2013Q4

REPORT INFORMATION
  Report Type: Spontaneous
  Country: US (occurrence: None)
  Receive Date: 20131018
  Receipt Date: 20131018
  Transmission Date: 20140711
  Serious: No
  Sender: FDA-Public Use
  Company Number: AEGR000092

PATIENT
  Age: 67 Year
  Sex: Female
  Weight: 63.5 kg

DRUGS (9)
  1. JUXTAPID [Suspect]
     Indication: TYPE IIA HYPERLIPIDAEMIA
     Route: 048
     Dates: start: 20130310, end: 20130714
  2. LIPITOR(ATORVASTATIN CALCIUM) [Concomitant]
  3. WELCHOL(COLESEVELAM HYDROCHLORIDE) [Concomitant]
  4. SIMVASTATIN(SIMVASTATIN) [Concomitant]
  5. MULTIVITAMIN(VITAMIN NOS) [Concomitant]
  6. CO-Q10-CHLORELLA(UBIDECARENONE) [Concomitant]
  7. PROPAFENONE(PROPAFENONE HYDROCHLORIDE) [Concomitant]
  8. TERBINAFINE(TERBINAFINE) [Concomitant]
  9. VITAMIN D (COLECALCIFEROL) [Concomitant]

REACTIONS (2)
  - Diarrhoea [None]
  - Nausea [None]
